FAERS Safety Report 6556691-2 (Version None)
Quarter: 2010Q1

REPORT INFORMATION
  Report Type: 
  Country: None (occurrence: None)
  Receive Date: 20100128
  Receipt Date: 20100113
  Transmission Date: 20100710
  Serious: No
  Sender: FDA-Public Use
  Company Number: US-B.I. PHARMACEUTICALS,INC./RIDGEFIELD-2010-BP-00490BP

PATIENT
  Age: 63 Year
  Sex: Female

DRUGS (3)
  1. RANITIDINE HCL [Suspect]
     Indication: DYSPEPSIA
     Dosage: 300 MG
     Route: 048
     Dates: start: 20100108
  2. PREVACID [Concomitant]
     Indication: GASTROOESOPHAGEAL REFLUX DISEASE
     Dates: start: 20010101, end: 20100101
  3. ZOLOFT [Concomitant]
     Indication: DEPRESSION
     Dates: start: 20010101

REACTIONS (1)
  - DRUG INEFFECTIVE [None]
